FAERS Safety Report 5398952-9 (Version None)
Quarter: 2007Q3

REPORT INFORMATION
  Report Type: 
  Country: None (occurrence: None)
  Receive Date: 20070724
  Receipt Date: 20070724
  Transmission Date: 20080115
  Serious: Yes (Death, Hospitalization)
  Sender: FDA-Public Use
  Company Number: None

PATIENT
  Age: 81 Year
  Sex: Female

DRUGS (12)
  1. VIDAZA [Suspect]
     Indication: ACUTE MYELOID LEUKAEMIA
  2. TYLENOL (CAPLET) [Concomitant]
  3. HEPARIN [Concomitant]
  4. AZTREONAM [Concomitant]
  5. CIPROFLOXACIN [Concomitant]
  6. ALBUTEROL [Concomitant]
  7. IPRATROPIUM BROMIDE [Concomitant]
  8. BACTRIM [Concomitant]
  9. VANCOMYCIN [Concomitant]
  10. PROTONIX [Concomitant]
  11. REGLAN [Concomitant]
  12. BENADRYL [Concomitant]

REACTIONS (2)
  - GENERAL PHYSICAL HEALTH DETERIORATION [None]
  - PANCYTOPENIA [None]
